FAERS Safety Report 4411770-0 (Version None)
Quarter: 2004Q2

REPORT INFORMATION
  Report Type: 
  Country: None (occurrence: None)
  Receive Date: 20040630
  Receipt Date: 20040330
  Transmission Date: 20050107
  Serious: No
  Sender: FDA-Public Use
  Company Number: 04P-163-0255380-00

PATIENT
  Age: 60 Year
  Sex: Female
  Weight: 58.514 kg

DRUGS (10)
  1. HUMIRA [Suspect]
     Indication: RHEUMATOID ARTHRITIS
     Dosage: 40 MG, 1 IN 2 WK, SUBCUTANEOUS
     Route: 058
     Dates: start: 20031101
  2. DEXTROPROPOXYPHENE [Concomitant]
  3. ALPRAZOLAM [Concomitant]
  4. METHOTREXATE [Concomitant]
  5. CELECOXIB [Concomitant]
  6. CALCIUM WITH VITAMIN D [Concomitant]
  7. FOLIC ACID [Concomitant]
  8. ALENDRONATE SODIUM [Concomitant]
  9. MELATONIN [Concomitant]
  10. PREDNISONE [Concomitant]

REACTIONS (1)
  - VAGINAL HAEMORRHAGE [None]
